FAERS Safety Report 9256032 (Version 1)
Quarter: 2013Q2

REPORT INFORMATION
  Report Type: Spontaneous
  Country: BE (occurrence: BE)
  Receive Date: 20130425
  Receipt Date: 20130425
  Transmission Date: 20140414
  Serious: Yes (Hospitalization)
  Sender: FDA-Public Use
  Company Number: PHHY2013BE038213

PATIENT
  Age: 24 Year
  Sex: Female
  Weight: 75 kg

DRUGS (3)
  1. CLAUDIA 35 [Suspect]
     Indication: CONTRACEPTION
     Dosage: 1 DF, DAILY DURING 21 DAYS
     Route: 048
     Dates: start: 20110501, end: 20130323
  2. CLAUDIA 35 [Suspect]
     Indication: ACNE
  3. DAFALGAN [Concomitant]
     Indication: INFLUENZA
     Dosage: 2 DF, DAILY
     Route: 048
     Dates: start: 20121107, end: 20121115

REACTIONS (3)
  - Ectropion of cervix [Recovering/Resolving]
  - Coagulopathy [Recovering/Resolving]
  - Metrorrhagia [Recovering/Resolving]
